FAERS Safety Report 6071001-5 (Version None)
Quarter: 2009Q1

REPORT INFORMATION
  Report Type: 
  Country: None (occurrence: None)
  Receive Date: 20090209
  Receipt Date: 20090206
  Transmission Date: 20090719
  Serious: Yes (Other)
  Sender: FDA-Public Use
  Company Number: B0532475A

PATIENT
  Age: 38 Year
  Sex: Male
  Weight: 59 kg

DRUGS (8)
  1. ARRANON [Suspect]
     Dosage: 2500MG PER DAY
     Route: 042
     Dates: start: 20080714, end: 20081014
  2. PROGRAF [Concomitant]
     Route: 042
     Dates: start: 20080704, end: 20080704
  3. ITRIZOLE [Concomitant]
     Route: 048
     Dates: start: 20080717, end: 20080819
  4. CRAVIT [Concomitant]
     Route: 048
     Dates: start: 20080717, end: 20080719
  5. GASTER [Concomitant]
     Route: 048
     Dates: start: 20080817
  6. MUCOSTA [Concomitant]
     Route: 048
     Dates: start: 20080717
  7. ENTOMOL [Concomitant]
     Route: 048
     Dates: start: 20080717, end: 20080815
  8. URSO 250 [Concomitant]
     Route: 048
     Dates: start: 20080806

REACTIONS (3)
  - ALANINE AMINOTRANSFERASE INCREASED [None]
  - ASPARTATE AMINOTRANSFERASE INCREASED [None]
  - LIVER DISORDER [None]
